FAERS Safety Report 7238143-X (Version None)
Quarter: 2011Q1

REPORT INFORMATION
  Report Type: 
  Country: None (occurrence: None)
  Receive Date: 20110121
  Receipt Date: 20110119
  Transmission Date: 20110831
  Serious: Yes (Hospitalization, Other)
  Sender: FDA-Public Use
  Company Number: US-B.I. PHARMACEUTICALS,INC./RIDGEFIELD-2011-BP-01178BP

PATIENT

DRUGS (1)
  1. PRADAXA [Suspect]

REACTIONS (4)
  - CREATININE RENAL CLEARANCE DECREASED [None]
  - CEREBROVASCULAR ACCIDENT [None]
  - HAEMORRHAGE [None]
  - MYOCARDIAL INFARCTION [None]
